FAERS Safety Report 15506066 (Version 1)
Quarter: 2018Q4

REPORT INFORMATION
  Report Type: Spontaneous
  Country: TH (occurrence: TH)
  Receive Date: 20181016
  Receipt Date: 20181016
  Transmission Date: 20190205
  Serious: Yes (Hospitalization)
  Sender: FDA-Public Use
  Company Number: TH-MYLANLABS-2018M1075131

PATIENT
  Age: 38 Year
  Sex: Female

DRUGS (5)
  1. MESTINON [Concomitant]
     Active Substance: PYRIDOSTIGMINE BROMIDE
     Indication: MYASTHENIA GRAVIS
     Route: 065
  2. AZATHIOPRINE. [Suspect]
     Active Substance: AZATHIOPRINE
     Indication: SYSTEMIC LUPUS ERYTHEMATOSUS
     Dosage: INITIAL DOSE NOT STATED
     Route: 065
  3. HYDROXYCHLOROQUINE [Suspect]
     Active Substance: HYDROXYCHLOROQUINE
     Indication: SYSTEMIC LUPUS ERYTHEMATOSUS
     Route: 065
  4. PREDNISOLONE. [Suspect]
     Active Substance: PREDNISOLONE
     Indication: SYSTEMIC LUPUS ERYTHEMATOSUS
     Dosage: INITIAL DOSE NOT STATED
     Route: 065
  5. PREDNISOLONE. [Suspect]
     Active Substance: PREDNISOLONE
     Route: 065

REACTIONS (10)
  - Lymphopenia [Recovering/Resolving]
  - Pleural effusion [Recovering/Resolving]
  - Legionella infection [Recovered/Resolved]
  - Cytomegalovirus syndrome [Recovered/Resolved]
  - Varicella zoster virus infection [Recovering/Resolving]
  - Infective myositis [Recovering/Resolving]
  - Panniculitis [Recovering/Resolving]
  - Pericardial effusion [Recovering/Resolving]
  - Cytomegalovirus gastroenteritis [Recovered/Resolved]
  - Myocarditis infectious [Recovering/Resolving]
